FAERS Safety Report 8595012-0 (Version None)
Quarter: 2012Q3

REPORT INFORMATION
  Report Type: 
  Country: None (occurrence: None)
  Receive Date: 20120815
  Receipt Date: 20120809
  Transmission Date: 20120928
  Serious: No
  Sender: FDA-Public Use
  Company Number: US-PFIZER INC-2012195080

PATIENT
  Age: 13 Year
  Sex: Male

DRUGS (2)
  1. SOMAVERT [Suspect]
     Indication: ACROMEGALY
     Dosage: UNK
     Dates: start: 20120501
  2. SOMAVERT [Suspect]
     Indication: GIGANTISM
     Dosage: 10 MG, DAILY
     Dates: end: 20120101

REACTIONS (1)
  - HEPATIC ENZYME INCREASED [None]
